FAERS Safety Report 25877789 (Version 1)
Quarter: 2025Q4

REPORT INFORMATION
  Report Type: Spontaneous
  Country: EU (occurrence: EU)
  Receive Date: 20251003
  Receipt Date: 20251003
  Transmission Date: 20260117
  Serious: Yes (Other)
  Sender: ROCHE
  Company Number: EU-EMB-M202407486-1

PATIENT
  Sex: Male
  Weight: 2.7 kg

DRUGS (7)
  1. XOLAIR [Suspect]
     Active Substance: OMALIZUMAB
     Indication: Product used for unknown indication
     Dosage: MATERNAL EXPOSURE DURING PREGNANCY: 300-450 MG PER MONTH, UNTIL GW 25
     Route: 064
     Dates: start: 202406, end: 202412
  2. ACETAMINOPHEN [Concomitant]
     Active Substance: ACETAMINOPHEN
     Indication: Product used for unknown indication
     Dosage: MATERNAL EXPOSURE DURING PREGNANCY:UNK (ACTUAL MEDICATION INTAKE UNCLEAR, EVENTUALLY AROUND GW 11)
     Route: 064
  3. BOOSTRIX [Concomitant]
     Active Substance: TETANUS TOXOID, REDUCED DIPHTHERIA TOXOID AND ACELLULAR PERTUSSIS VACCINE ADSORBED, TDAP
     Indication: Product used for unknown indication
     Dosage: MATERNAL EXPOSURE DURING PREGNANCY:UNK
     Route: 064
     Dates: start: 202501
  4. PREDNISOLONE [Concomitant]
     Active Substance: PREDNISOLONE
     Indication: Product used for unknown indication
     Dosage: MATERNAL EXPOSURE DURING PREGNANCY:DAILY DOSAGE: 5 MG - 0 - 2 MG, UNTIL APPROXIMATELY GW 9
     Route: 064
  5. LEVOTHYROXINE SODIUM [Concomitant]
     Active Substance: LEVOTHYROXINE SODIUM
     Route: 064
     Dates: start: 202406, end: 202503
  6. VAXIGRIPTETRA [Concomitant]
     Active Substance: INFLUENZA VIRUS VACCINE QUADRIVALENT TYPE A+B
     Dosage: MATERNAL EXPOSURE DURING PREGNANCY: UNK, QD
     Route: 064
     Dates: start: 202410
  7. CETIRIZINE [Concomitant]
     Active Substance: CETIRIZINE HYDROCHLORIDE
     Dosage: MATERNAL EXPOSURE DURING PREGNANCY: 0.25 DAY, UNTIL APPROXIMATELY GW 14
     Route: 064

REACTIONS (2)
  - Small for dates baby [Recovered/Resolved]
  - Foetal exposure during pregnancy [Unknown]
